FAERS Safety Report 16016077 (Version 1)
Quarter: 2019Q1

REPORT INFORMATION
  Report Type: Spontaneous
  Country: CH (occurrence: CH)
  Receive Date: 20190228
  Receipt Date: 20190228
  Transmission Date: 20190418
  Serious: Yes (Other)
  Sender: FDA-Public Use
  Company Number: CH-SA-2019SA052350

PATIENT
  Age: 68 Year
  Sex: Male

DRUGS (2)
  1. RIFAMPICIN [Suspect]
     Active Substance: RIFAMPIN
     Dosage: 1 WEEK EARLIER
  2. RIFAMPICIN [Suspect]
     Active Substance: RIFAMPIN
     Indication: STAPHYLOCOCCAL INFECTION
     Dosage: UNK

REACTIONS (7)
  - Haemolytic anaemia [Unknown]
  - Drug hypersensitivity [Recovered/Resolved]
  - Contraindicated product administered [Recovered/Resolved]
  - C-reactive protein increased [Unknown]
  - Acute kidney injury [Recovered/Resolved]
  - Acute hepatic failure [Recovered/Resolved]
  - Alveolitis allergic [Recovered/Resolved]
